FAERS Safety Report 8160161-8 (Version None)
Quarter: 2012Q1

REPORT INFORMATION
  Report Type: 
  Country: None (occurrence: None)
  Receive Date: 20120223
  Receipt Date: 20120223
  Transmission Date: 20120608
  Serious: Yes (Other)
  Sender: FDA-Public Use
  Company Number: JP-BRACCO-005637

PATIENT
  Age: 60 Year
  Sex: Male

DRUGS (6)
  1. NEXAVAR [Suspect]
     Dosage: REGIMEN # 3
     Route: 048
  2. IOPAMIDOL [Suspect]
     Indication: DIAGNOSTIC PROCEDURE
     Route: 065
  3. NEXAVAR [Suspect]
     Dosage: REGIMEN #1
     Route: 048
  4. CISPLATIN [Concomitant]
  5. HEPARIN SODIUM [Concomitant]
  6. NEXAVAR [Suspect]
     Indication: HEPATIC NEOPLASM MALIGNANT
     Dosage: REGIMEN # 2  QOD
     Route: 048

REACTIONS (1)
  - PLATELET COUNT DECREASED [None]
